FAERS Safety Report 16843981 (Version 1)
Quarter: 2019Q3

REPORT INFORMATION
  Report Type: Spontaneous
  Country: US (occurrence: US)
  Receive Date: 20190802
  Receipt Date: 20190802
  Transmission Date: 20191005
  Serious: Yes (Other)
  Sender: FDA-Public Use
  Company Number: None

PATIENT
  Sex: Female
  Weight: 56.7 kg

DRUGS (1)
  1. MEDIHERB ADRENAL TONIC M4405 [HERBALS} [Suspect]
     Active Substance: HERBALS

REACTIONS (2)
  - Pyrexia [None]
  - Hot flush [None]
